FAERS Safety Report 24538797 (Version 1)
Quarter: 2024Q4

REPORT INFORMATION
  Report Type: Spontaneous
  Country: US (occurrence: US)
  Receive Date: 20241023
  Receipt Date: 20241023
  Transmission Date: 20250115
  Serious: No
  Sender: EMD SERONO INC
  Company Number: US-Merck Healthcare KGaA-2024055282

PATIENT
  Age: 57 Year
  Sex: Female

DRUGS (1)
  1. MAVENCLAD [Suspect]
     Active Substance: CLADRIBINE
     Indication: Multiple sclerosis
     Route: 048
     Dates: start: 20231014

REACTIONS (2)
  - Headache [Recovering/Resolving]
  - Insomnia [Recovering/Resolving]
